FAERS Safety Report 9194232 (Version 2)
Quarter: 2013Q2

REPORT INFORMATION
  Report Type: Spontaneous
  Country: DK (occurrence: JP)
  Receive Date: 20130327
  Receipt Date: 20130507
  Transmission Date: 20140414
  Serious: Yes (Life-Threatening)
  Sender: FDA-Public Use
  Company Number: JP-FRI-1000043785

PATIENT
  Age: 17 Year
  Sex: Female
  Weight: 50 kg

DRUGS (3)
  1. LEXAPRO [Suspect]
     Indication: MAJOR DEPRESSION
     Dosage: 10 MG
     Route: 048
     Dates: start: 20130220, end: 20130224
  2. LEXAPRO [Suspect]
     Dosage: 20 MG
     Route: 048
     Dates: start: 20130225, end: 20130308
  3. LEXAPRO [Suspect]
     Dosage: 10 MG
     Route: 048
     Dates: start: 20130309, end: 20130310

REACTIONS (2)
  - Activation syndrome [Recovering/Resolving]
  - Off label use [Recovered/Resolved]
